FAERS Safety Report 12926144 (Version 1)
Quarter: 2016Q4

REPORT INFORMATION
  Report Type: Spontaneous
  Country: FR (occurrence: FR)
  Receive Date: 20161109
  Receipt Date: 20161109
  Transmission Date: 20170207
  Serious: Yes (Hospitalization)
  Sender: FDA-Public Use
  Company Number: FR-JNJFOC-20161104637

PATIENT
  Age: 49 Year
  Sex: Male

DRUGS (5)
  1. LASILIX [Concomitant]
     Active Substance: FUROSEMIDE
     Route: 065
  2. PROPRANOLOL [Suspect]
     Active Substance: PROPRANOLOL\PROPRANOLOL HYDROCHLORIDE
     Indication: PRODUCT USED FOR UNKNOWN INDICATION
     Route: 048
     Dates: start: 20160929, end: 20160929
  3. TRIATEC [Concomitant]
     Active Substance: RAMIPRIL
     Route: 065
  4. AMIODARONE [Suspect]
     Active Substance: AMIODARONE
     Indication: PRODUCT USED FOR UNKNOWN INDICATION
     Route: 048
     Dates: start: 20160929, end: 20160929
  5. XARELTO [Suspect]
     Active Substance: RIVAROXABAN
     Indication: PRODUCT USED FOR UNKNOWN INDICATION
     Route: 048
     Dates: start: 20160929, end: 20160929

REACTIONS (6)
  - Hypotension [Recovered/Resolved]
  - Cardiogenic shock [Recovered/Resolved]
  - Hypothermia [Recovered/Resolved]
  - Bleeding time prolonged [Recovered/Resolved]
  - Miosis [Recovered/Resolved]
  - Oedema peripheral [Recovered/Resolved]

NARRATIVE: CASE EVENT DATE: 20160929
